FAERS Safety Report 16199915 (Version 3)
Quarter: 2019Q2

REPORT INFORMATION
  Report Type: Report from Study
  Country: BD (occurrence: BD)
  Receive Date: 20190415
  Receipt Date: 20190430
  Transmission Date: 20190711
  Serious: Yes (Death, Other)
  Sender: FDA-Public Use
  Company Number: PHHY2019BD087220

PATIENT
  Age: 49 Year
  Sex: Female
  Weight: 70 kg

DRUGS (1)
  1. GLIVEC [Suspect]
     Active Substance: IMATINIB MESYLATE
     Indication: SARCOMA
     Dosage: 1 DF, QD
     Route: 048
     Dates: start: 20190113

REACTIONS (5)
  - Oedema [Unknown]
  - Cachexia [Unknown]
  - Renal failure [Unknown]
  - Metastasis [Unknown]
  - Death [Fatal]

NARRATIVE: CASE EVENT DATE: 20190202
